FAERS Safety Report 9467879 (Version 1)
Quarter: 2013Q3

REPORT INFORMATION
  Report Type: Report from Study
  Country: CA (occurrence: CA)
  Receive Date: 20130821
  Receipt Date: 20130821
  Transmission Date: 20140515
  Serious: Yes (Other)
  Sender: FDA-Public Use
  Company Number: CA-JNJFOC-20130808135

PATIENT
  Age: 62 Year
  Sex: Male
  Weight: 103 kg

DRUGS (9)
  1. REMICADE [Suspect]
     Indication: COLITIS ULCERATIVE
     Dosage: THERAPY DURATION: 2 HOURS
     Route: 042
  2. CLONAZEPAM [Concomitant]
     Route: 048
  3. TEVA QUETIAPINE [Concomitant]
     Route: 048
  4. SALOFALK [Concomitant]
     Route: 065
  5. BISOPROLOL [Concomitant]
     Route: 048
  6. RAMIPRIL [Concomitant]
     Route: 048
  7. VENLAFAXINE [Concomitant]
     Route: 048
  8. GLICLAZIDE [Concomitant]
     Route: 048
  9. METFORMIN [Concomitant]
     Route: 048

REACTIONS (5)
  - Suicidal ideation [Not Recovered/Not Resolved]
  - Colitis ulcerative [Not Recovered/Not Resolved]
  - Mood altered [Not Recovered/Not Resolved]
  - Irritability [Unknown]
  - Paranoia [Unknown]
